FAERS Safety Report 15642133 (Version 1)
Quarter: 2018Q4

REPORT INFORMATION
  Report Type: Report from Study
  Country: None (occurrence: US)
  Receive Date: 20181121
  Receipt Date: 20181121
  Transmission Date: 20190205
  Serious: Yes (Other)
  Sender: FDA-Public Use
  Company Number: US-ABBVIE-18K-163-2553917-00

PATIENT
  Age: 59 Year
  Sex: Female
  Weight: 99.88 kg

DRUGS (6)
  1. NORCO [Concomitant]
     Active Substance: ACETAMINOPHEN\HYDROCODONE BITARTRATE
     Indication: PAIN
  2. HUMIRA [Suspect]
     Active Substance: ADALIMUMAB
     Indication: RHEUMATOID ARTHRITIS
     Route: 058
     Dates: start: 2016, end: 2016
  3. HUMIRA [Suspect]
     Active Substance: ADALIMUMAB
     Route: 058
     Dates: start: 2016, end: 201810
  4. LOSARTAN. [Concomitant]
     Active Substance: LOSARTAN
     Indication: HYPERTENSION
  5. CELEBREX [Concomitant]
     Active Substance: CELECOXIB
     Indication: ARTHRITIS
  6. ASPIRIN. [Concomitant]
     Active Substance: ASPIRIN
     Indication: CARDIAC DISORDER

REACTIONS (3)
  - Osteoarthritis [Recovered/Resolved]
  - Meniscus injury [Recovering/Resolving]
  - Osteoarthritis [Recovering/Resolving]

NARRATIVE: CASE EVENT DATE: 2016
